FAERS Safety Report 5133909-4 (Version None)
Quarter: 2006Q4

REPORT INFORMATION
  Report Type: 
  Country: None (occurrence: None)
  Receive Date: 20061018
  Receipt Date: 20050927
  Transmission Date: 20070319
  Serious: Yes (Death, Hospitalization, Other)
  Sender: FDA-Public Use
  Company Number: 2005BH001742

PATIENT
  Age: 33 Year
  Sex: Female

DRUGS (1)
  1. DIANEAL [Suspect]
     Indication: PERITONEAL DIALYSIS
     Dosage: IP
     Route: 033

REACTIONS (4)
  - ARRHYTHMIA [None]
  - ENTEROCOCCAL INFECTION [None]
  - PERITONITIS [None]
  - SEPSIS [None]
